FAERS Safety Report 9400623 (Version 1)
Quarter: 2013Q3

REPORT INFORMATION
  Report Type: Spontaneous
  Country: CN (occurrence: None)
  Receive Date: 20130711
  Receipt Date: 20130711
  Transmission Date: 20140515
  Serious: Yes (Other)
  Sender: FDA-Public Use
  Company Number: VAL_02629_2013

PATIENT
  Sex: Female

DRUGS (5)
  1. CALCITRIOL [Suspect]
     Indication: OSTEOPOROSIS
     Route: 048
     Dates: start: 2005
  2. CELLCEPT [Suspect]
     Indication: RENAL TRANSPLANT
     Route: 048
     Dates: start: 20020928
  3. PREDNISONE ACETATE [Suspect]
     Indication: RENAL TRANSPLANT
     Route: 048
     Dates: start: 20020928
  4. CYCLOSPORIN [Concomitant]
  5. CALCIUM [Concomitant]

REACTIONS (2)
  - Lower limb fracture [None]
  - Osteoporosis [None]
